FAERS Safety Report 6892886-6 (Version None)
Quarter: 2010Q3

REPORT INFORMATION
  Report Type: 
  Country: None (occurrence: None)
  Receive Date: 20100731
  Receipt Date: 20081031
  Transmission Date: 20110219
  Serious: No
  Sender: FDA-Public Use
  Company Number: US-PFIZER INC-2008092827

PATIENT
  Sex: Female

DRUGS (5)
  1. GABAPENTIN [Suspect]
     Indication: NEUROPATHY PERIPHERAL
     Dates: start: 20080411, end: 20081001
  2. PAROXETINE HCL [Concomitant]
  3. VICODIN [Concomitant]
     Indication: NEURALGIA
  4. CITALOPRAM [Concomitant]
     Indication: ANXIETY
  5. MORPHINE SULFATE [Concomitant]
     Indication: NEURALGIA

REACTIONS (2)
  - ABNORMAL DREAMS [None]
  - OEDEMA PERIPHERAL [None]
